FAERS Safety Report 14392044 (Version 1)
Quarter: 2018Q1

REPORT INFORMATION
  Report Type: Spontaneous
  Country: US (occurrence: US)
  Receive Date: 20180116
  Receipt Date: 20180116
  Transmission Date: 20180509
  Serious: No
  Sender: FDA-Public Use
  Company Number: US-GLAXOSMITHKLINE-US2018005161

PATIENT
  Sex: Female

DRUGS (1)
  1. NUCALA [Suspect]
     Active Substance: MEPOLIZUMAB
     Indication: MULTIPLE ALLERGIES
     Dosage: UNK
     Route: 058
     Dates: end: 2017

REACTIONS (4)
  - Drug ineffective for unapproved indication [Unknown]
  - Dyspnoea [Not Recovered/Not Resolved]
  - Injection site reaction [Recovering/Resolving]
  - Product use in unapproved indication [Unknown]
